FAERS Safety Report 4325643-5 (Version None)
Quarter: 2004Q1

REPORT INFORMATION
  Report Type: 
  Country: None (occurrence: None)
  Receive Date: 20040329
  Receipt Date: 20040304
  Transmission Date: 20041129
  Serious: Yes (Other)
  Sender: FDA-Public Use
  Company Number: NL-BRISTOL-MYERS SQUIBB COMPANY-12528584

PATIENT
  Age: 54 Year
  Sex: Male

DRUGS (8)
  1. METFORMIN HCL [Suspect]
     Route: 048
  2. ARCOXIA [Interacting]
     Route: 048
     Dates: start: 20040129, end: 20040207
  3. AMARYL [Interacting]
     Route: 048
  4. ASPIRIN [Concomitant]
     Route: 048
  5. NEWACE-10 [Concomitant]
  6. SELOKEEN [Concomitant]
     Route: 048
  7. BEZALIP [Concomitant]
  8. LIPITOR [Concomitant]
     Route: 048

REACTIONS (3)
  - BLOOD GLUCOSE DECREASED [None]
  - DRUG INTERACTION [None]
  - HYPOGLYCAEMIA [None]
